FAERS Safety Report 13035321 (Version 2)
Quarter: 2017Q1

REPORT INFORMATION
  Report Type: Report from Study
  Country: IN (occurrence: IN)
  Receive Date: 20161216
  Receipt Date: 20170102
  Transmission Date: 20170428
  Serious: Yes (Other)
  Sender: FDA-Public Use
  Company Number: PHHY2016IN171393

PATIENT
  Sex: Female

DRUGS (1)
  1. TYKERB [Suspect]
     Active Substance: LAPATINIB DITOSYLATE
     Indication: BREAST CANCER
     Dosage: 4 DF, QD
     Route: 048
     Dates: start: 20150408

REACTIONS (4)
  - Thrombosis [Recovered/Resolved]
  - Skin haemorrhage [Recovered/Resolved]
  - Gastric pH decreased [Recovered/Resolved]
  - Skin fissures [Recovered/Resolved]
